FAERS Safety Report 9625584 (Version 4)
Quarter: 2014Q2

REPORT INFORMATION
  Report Type: Report from Study
  Country: US (occurrence: US)
  Receive Date: 20131016
  Receipt Date: 20140515
  Transmission Date: 20141212
  Serious: Yes (Other)
  Sender: FDA-Public Use
  Company Number: US-NAPPMUNDI-USA-2013-0107530

PATIENT
  Age: 66 Year
  Sex: Female

DRUGS (4)
  1. OXY CR TAB [Suspect]
     Indication: OSTEOARTHRITIS
     Dosage: 60 MG, BID
     Route: 048
  2. OXY CR TAB [Suspect]
     Indication: LUMBAR SPINAL STENOSIS
  3. OXY CR TAB [Suspect]
     Indication: BACK PAIN
  4. OXY CR TAB [Suspect]
     Indication: ARTHRALGIA

REACTIONS (7)
  - Road traffic accident [Recovered/Resolved]
  - Upper limb fracture [Unknown]
  - Limb crushing injury [Recovering/Resolving]
  - Knee arthroplasty [Recovered/Resolved]
  - Diabetes mellitus [Not Recovered/Not Resolved]
  - Weight increased [Unknown]
  - Hypertension [Unknown]
